FAERS Safety Report 15034505 (Version 1)
Quarter: 2018Q2

REPORT INFORMATION
  Report Type: Spontaneous
  Country: US (occurrence: US)
  Receive Date: 20180620
  Receipt Date: 20180620
  Transmission Date: 20180711
  Serious: No
  Sender: FDA-Public Use
  Company Number: US-AUROBINDO-AUR-APL-2018-022970

PATIENT
  Sex: Male

DRUGS (5)
  1. ATOMOXETINE HYDROCHLORIDE. [Suspect]
     Active Substance: ATOMOXETINE HYDROCHLORIDE
     Indication: ATTENTION DEFICIT/HYPERACTIVITY DISORDER
  2. ATOMOXETINE CAPSULES USP 100 MG [Suspect]
     Active Substance: ATOMOXETINE
     Indication: ATTENTION DEFICIT/HYPERACTIVITY DISORDER
  3. INTUNIV [Concomitant]
     Active Substance: GUANFACINE HYDROCHLORIDE
  4. ATOMOXETINE HYDROCHLORIDE. [Suspect]
     Active Substance: ATOMOXETINE HYDROCHLORIDE
     Indication: TOURETTE^S DISORDER
     Dosage: 25 MILLIGRAM, DAILY AT HS
     Route: 048
  5. ATOMOXETINE CAPSULES USP 100 MG [Suspect]
     Active Substance: ATOMOXETINE
     Indication: TOURETTE^S DISORDER
     Dosage: 18 MILLIGRAM, DAILY, HS
     Route: 048
     Dates: start: 20180406

REACTIONS (4)
  - Somnolence [Not Recovered/Not Resolved]
  - Flat affect [Not Recovered/Not Resolved]
  - Soliloquy [Not Recovered/Not Resolved]
  - Product substitution issue [Unknown]
